FAERS Safety Report 6112085-5 (Version None)
Quarter: 2009Q1

REPORT INFORMATION
  Report Type: 
  Country: None (occurrence: None)
  Receive Date: 20090311
  Receipt Date: 20090227
  Transmission Date: 20090719
  Serious: Yes (Other)
  Sender: FDA-Public Use
  Company Number: NO-PFIZER INC-2009176589

PATIENT

DRUGS (45)
  1. DOXORUBICIN HCL [Suspect]
     Indication: SARCOMA
     Dosage: 35 MG/M2
     Route: 065
  2. CISPLATIN [Suspect]
     Indication: SARCOMA
     Dosage: UNK
     Route: 065
  3. BLEOMYCIN SULFATE [Suspect]
     Indication: SARCOMA
     Dosage: UNK
     Route: 040
  4. MESNA [Suspect]
     Indication: SARCOMA
     Dosage: 6000 MG/M2
     Route: 040
  5. MESNA [Suspect]
     Dosage: 2400 MG/M2
     Route: 065
  6. HOLOXAN [Suspect]
     Indication: SARCOMA
     Dosage: 2800 MG
     Route: 065
     Dates: start: 20081117, end: 20081117
  7. HOLOXAN [Suspect]
     Dosage: 2800 MG
     Route: 065
     Dates: start: 20090116, end: 20090116
  8. HOLOXAN [Suspect]
     Dosage: 2700 MG
     Route: 065
     Dates: start: 20090113, end: 20090113
  9. HOLOXAN [Suspect]
     Dosage: 2800  MG
     Route: 065
     Dates: start: 20081209, end: 20081209
  10. HOLOXAN [Suspect]
     Dosage: 2700 MG
     Route: 065
     Dates: start: 20090113, end: 20090113
  11. HOLOXAN [Suspect]
     Dosage: 2800 MG
     Route: 065
     Dates: start: 20090116, end: 20090116
  12. HOLOXAN [Suspect]
     Dosage: 2900 MG
     Route: 065
     Dates: start: 20081114, end: 20081114
  13. HOLOXAN [Suspect]
     Dosage: 2900 MG
     Route: 065
     Dates: start: 20081114, end: 20081114
  14. HOLOXAN [Suspect]
     Dosage: 2800 MG
     Route: 065
     Dates: start: 20081208, end: 20081208
  15. HOLOXAN [Suspect]
     Dosage: 2800 MG
     Route: 065
     Dates: start: 20081117, end: 20081117
  16. HOLOXAN [Suspect]
     Dosage: 2800 MG
     Route: 065
     Dates: start: 20081208, end: 20081208
  17. HOLOXAN [Suspect]
     Dosage: 2800 MG
     Route: 065
     Dates: start: 20081209, end: 20081209
  18. OXYCONTIN [Concomitant]
     Dosage: 40 MG
     Dates: end: 20081210
  19. DEXAMETHASONE [Concomitant]
     Dosage: 8 MG
     Dates: start: 20090113, end: 20090117
  20. DEXAMETHASONE [Concomitant]
     Dosage: 8 MG
     Dates: start: 20081208, end: 20081210
  21. DEXAMETHASONE [Concomitant]
     Dosage: 8 MG
     Dates: start: 20081114, end: 20081119
  22. NEULASTA [Concomitant]
     Dosage: 6 MG
     Route: 058
     Dates: start: 20090118, end: 20090119
  23. NEULASTA [Concomitant]
     Dosage: 6 MG
     Route: 058
     Dates: start: 20081210, end: 20081210
  24. NEULASTA [Concomitant]
     Dosage: 6 MG
     Route: 058
     Dates: start: 20081119, end: 20081119
  25. FLORINEF [Concomitant]
     Dosage: UNK
  26. NATRON [Concomitant]
     Dosage: 1 G
  27. ZOPICLONE [Concomitant]
     Dosage: 7 MG
  28. ZOFRAN [Concomitant]
     Dosage: 8 MG
     Dates: start: 20081208, end: 20081215
  29. ZOFRAN [Concomitant]
     Dosage: 8 MG
     Dates: start: 20081114, end: 20081119
  30. ZOFRAN [Concomitant]
     Dosage: 8 MG
     Dates: start: 20090113, end: 20090119
  31. TAZOCIN [Concomitant]
     Dosage: 4 G
     Route: 042
  32. EMEND [Concomitant]
     Dosage: 80 MG
     Dates: start: 20081114, end: 20081119
  33. EMEND [Concomitant]
     Dosage: 80 MG
     Dates: start: 20090113, end: 20090118
  34. EMEND [Concomitant]
     Dosage: 80 MG
     Dates: start: 20081208, end: 20081210
  35. ACETAMINOPHEN [Concomitant]
  36. ALBYL-E [Concomitant]
     Dosage: 160 MG
  37. PREGABALIN [Concomitant]
     Dosage: 75 MG
  38. FLAGYL [Concomitant]
     Dosage: 400 MG
  39. DOLCONTIN [Concomitant]
     Dosage: 10 MG
     Dates: start: 20081210
  40. LACTULOSE [Concomitant]
     Dosage: 15 ML
  41. NICOTINELL TTS [Concomitant]
     Dosage: 14 MG
  42. OXYNORM [Concomitant]
  43. KEFLEX [Concomitant]
     Dosage: 500 MG
  44. FERRO-RETARD [Concomitant]
     Dosage: 2 DF
  45. FRAGMIN [Concomitant]
     Dosage: 5000 IU
     Route: 058

REACTIONS (2)
  - ENCEPHALOPATHY [None]
  - MUSCLE TWITCHING [None]
